FAERS Safety Report 17849588 (Version 2)
Quarter: 2020Q2

REPORT INFORMATION
  Report Type: Spontaneous
  Country: US (occurrence: US)
  Receive Date: 20200602
  Receipt Date: 20200610
  Transmission Date: 20200714
  Serious: Yes (Other)
  Sender: FDA-Public Use
  Company Number: US-PFIZER INC-2020212117

PATIENT
  Age: 64 Year
  Sex: Male

DRUGS (3)
  1. VANCOMYCIN HCL [Suspect]
     Active Substance: VANCOMYCIN HYDROCHLORIDE
     Indication: MEDICAL DEVICE SITE JOINT INFECTION
     Dosage: 4 G (IMPREGNATED)
     Route: 042
  2. TOBRAMYCIN. [Concomitant]
     Active Substance: TOBRAMYCIN
     Indication: MEDICAL DEVICE SITE JOINT INFECTION
     Dosage: 2.4 G (IMPREGNATED)
  3. ENOXAPARIN [Concomitant]
     Active Substance: ENOXAPARIN
     Dosage: UNK

REACTIONS (1)
  - Immune thrombocytopenia [Recovering/Resolving]
